FAERS Safety Report 7486925-1 (Version None)
Quarter: 2011Q2

REPORT INFORMATION
  Report Type: 
  Country: None (occurrence: None)
  Receive Date: 20110517
  Receipt Date: 20100910
  Transmission Date: 20111010
  Serious: No
  Sender: FDA-Public Use
  Company Number: US-AMGEN-TCS433603

PATIENT
  Age: 67 Year
  Sex: Female
  Weight: 68.1 kg

DRUGS (6)
  1. SIMVASTATIN [Concomitant]
     Dosage: 40 MG, QD
     Route: 048
  2. ZOLPIDEM TARTRATE [Concomitant]
     Dosage: 5 MG, QD
     Route: 048
  3. LANSOPRAZOLE [Concomitant]
     Dosage: 15 MG, QD
     Route: 048
  4. ALPRAZOLAM [Concomitant]
     Indication: ANXIETY
     Dosage: .25 MG, QD
     Route: 048
  5. AMLODIPINE BESYLATE [Concomitant]
     Dosage: 10 MG, QD
     Route: 048
  6. ENBREL [Suspect]
     Indication: PSORIASIS
     Dosage: 50 MG, QWK
     Route: 058
     Dates: start: 20080402

REACTIONS (3)
  - INJECTION SITE ERYTHEMA [None]
  - INJURY ASSOCIATED WITH DEVICE [None]
  - INJECTION SITE HAEMORRHAGE [None]
